FAERS Safety Report 25020218 (Version 2)
Quarter: 2025Q1

REPORT INFORMATION
  Report Type: Spontaneous
  Country: US (occurrence: US)
  Receive Date: 20250227
  Receipt Date: 20250301
  Transmission Date: 20250408
  Serious: No
  Sender: ABBVIE
  Company Number: US-ABBVIE-6147628

PATIENT
  Age: 55 Year

DRUGS (1)
  1. VUITY [Suspect]
     Active Substance: PILOCARPINE HYDROCHLORIDE
     Indication: Product used for unknown indication
     Route: 047
     Dates: start: 2025

REACTIONS (4)
  - Product container seal issue [Unknown]
  - Eye irritation [Unknown]
  - Product colour issue [Unknown]
  - Eye pain [Unknown]

NARRATIVE: CASE EVENT DATE: 20250101
